FAERS Safety Report 18694343 (Version 1)
Quarter: 2021Q1

REPORT INFORMATION
  Report Type: Spontaneous
  Country: US (occurrence: US)
  Receive Date: 20210101
  Receipt Date: 20210101
  Transmission Date: 20210419
  Serious: No
  Sender: FDA-Public Use
  Company Number: None

PATIENT
  Age: 81 Year
  Sex: Female

DRUGS (1)
  1. CASIRIVIMAB INTRAVENOUS [Suspect]
     Active Substance: CASIRIVIMAB
     Indication: COVID-19
     Dosage: ?          OTHER FREQUENCY:ONCE;?
     Route: 030
     Dates: start: 20201230, end: 20201230

REACTIONS (5)
  - Wrong product administered [None]
  - Product label confusion [None]
  - Product label issue [None]
  - Manufacturing product shipping issue [None]
  - Product outer packaging issue [None]

NARRATIVE: CASE EVENT DATE: 20201230
